FAERS Safety Report 5114126-0 (Version None)
Quarter: 2006Q3

REPORT INFORMATION
  Report Type: 
  Country: None (occurrence: None)
  Receive Date: 20060925
  Receipt Date: 20060919
  Transmission Date: 20061208
  Serious: Yes (Hospitalization)
  Sender: FDA-Public Use
  Company Number: 2006SE05007

PATIENT
  Age: 70 Year
  Sex: Female

DRUGS (4)
  1. BLOPRESS TABLETS 12 [Suspect]
     Indication: HYPERTENSION
     Route: 048
     Dates: start: 20060825, end: 20060905
  2. NORVASC [Concomitant]
     Route: 048
  3. NEUROTROPIN [Concomitant]
     Route: 048
  4. CYANOCOBALAMIN [Concomitant]
     Route: 048

REACTIONS (4)
  - DELIRIUM [None]
  - DIALYSIS [None]
  - HENOCH-SCHONLEIN PURPURA [None]
  - RENAL FAILURE ACUTE [None]
